FAERS Safety Report 13428206 (Version 2)
Quarter: 2017Q2

REPORT INFORMATION
  Report Type: Spontaneous
  Country: US (occurrence: US)
  Receive Date: 20170411
  Receipt Date: 20170626
  Transmission Date: 20170830
  Serious: No
  Sender: FDA-Public Use
  Company Number: US-ACTELION-A-NJ2017-152261

PATIENT
  Age: 55 Year
  Sex: Female

DRUGS (12)
  1. LIPITOR [Concomitant]
     Active Substance: ATORVASTATIN CALCIUM
  2. TARGRETIN [Concomitant]
     Active Substance: BEXAROTENE
  3. TRIAMCINOLONE [Concomitant]
     Active Substance: TRIAMCINOLONE
  4. GABAPENTIN. [Concomitant]
     Active Substance: GABAPENTIN
  5. VALCHLOR [Suspect]
     Active Substance: MECHLORETHAMINE
     Indication: MYCOSIS FUNGOIDES
     Dosage: 0.016 %, UNK
     Route: 061
     Dates: start: 20161102
  6. CLOBETASOL [Concomitant]
     Active Substance: CLOBETASOL
  7. CETAPHIL [Concomitant]
     Active Substance: AVOBENZONE\OCTOCRYLENE\TRICLOSAN
  8. HYDROXYZINE [Concomitant]
     Active Substance: HYDROXYZINE HYDROCHLORIDE
  9. CRESTOR [Concomitant]
     Active Substance: ROSUVASTATIN CALCIUM
  10. VITAMIN D2 [Concomitant]
     Active Substance: ERGOCALCIFEROL
  11. VITAMIN B12 [Concomitant]
     Active Substance: CYANOCOBALAMIN
  12. BIOTIN [Concomitant]
     Active Substance: BIOTIN

REACTIONS (2)
  - Erythema [Unknown]
  - Dry skin [Unknown]
